FAERS Safety Report 24731908 (Version 2)
Quarter: 2024Q4

REPORT INFORMATION
  Report Type: Spontaneous
  Country: CN (occurrence: CN)
  Receive Date: 20241213
  Receipt Date: 20241218
  Transmission Date: 20250115
  Serious: Yes (Hospitalization)
  Sender: PFIZER
  Company Number: CN-MLMSERVICE-20241203-PI275892-00270-1

PATIENT
  Age: 25 Year
  Sex: Female

DRUGS (5)
  1. METHYLPREDNISOLONE [Suspect]
     Active Substance: METHYLPREDNISOLONE
     Indication: Myocarditis
     Dosage: HIGH-DOSE (200 MG, 1X/DAY)
  2. METHYLPREDNISOLONE [Suspect]
     Active Substance: METHYLPREDNISOLONE
     Dosage: REDUCED ON DAY 6 (100 MG, 1X/DAY)
  3. METHYLPREDNISOLONE [Suspect]
     Active Substance: METHYLPREDNISOLONE
     Dosage: HALVED EVERY 3 DAYS UNTIL REDUCED TO 12.5 MG/DAY (12.5 MG, 1X/DAY)
  4. ACYCLOVIR [Concomitant]
     Active Substance: ACYCLOVIR
     Indication: Myocarditis
     Dosage: 500 MG, 1X/DAY
     Route: 042
  5. CEFTAZIDIME [Concomitant]
     Active Substance: CEFTAZIDIME
     Indication: Antibiotic therapy
     Dosage: 2 G, 2X/DAY
     Route: 042

REACTIONS (4)
  - Bronchopulmonary aspergillosis [Recovered/Resolved]
  - Disseminated aspergillosis [Recovered/Resolved]
  - Eye infection fungal [Recovered/Resolved]
  - Off label use [Unknown]
